FAERS Safety Report 8818205 (Version 1)
Quarter: 2012Q4

REPORT INFORMATION
  Report Type: 
  Country: US (occurrence: US)
  Receive Date: 20121001
  Receipt Date: 20121001
  Transmission Date: 20130627
  Serious: No
  Sender: FDA-Public Use
  Company Number: US-PFIZER INC-2012240092

PATIENT
  Age: 69 Year
  Sex: Female
  Weight: 68.48 kg

DRUGS (2)
  1. INLYTA [Suspect]
     Indication: RENAL CANCER METASTATIC
     Dosage: 10 mg, 2x/day
     Dates: start: 20120716
  2. SYNTHROID [Concomitant]
     Indication: THYROID DISORDER
     Dosage: UNK

REACTIONS (3)
  - Diarrhoea [Not Recovered/Not Resolved]
  - Disease progression [Unknown]
  - Renal cancer metastatic [Unknown]
